FAERS Safety Report 5587216-6 (Version None)
Quarter: 2008Q1

REPORT INFORMATION
  Report Type: 
  Country: None (occurrence: None)
  Receive Date: 20080110
  Receipt Date: 20070705
  Transmission Date: 20080703
  Serious: No
  Sender: FDA-Public Use
  Company Number: US-BRISTOL-MYERS SQUIBB COMPANY-13835970

PATIENT
  Sex: Female
  Weight: 67 kg

DRUGS (2)
  1. CARDIOLITE [Suspect]
  2. LOVASTATIN [Concomitant]

REACTIONS (2)
  - HYPERSENSITIVITY [None]
  - INJECTION SITE REACTION [None]
